FAERS Safety Report 10064581 (Version 1)
Quarter: 2014Q1

REPORT INFORMATION
  Report Type: Spontaneous
  Country: US (occurrence: None)
  Receive Date: 20140328
  Receipt Date: 20140328
  Transmission Date: 20141002
  Serious: No
  Sender: FDA-Public Use
  Company Number: 1000054496

PATIENT
  Sex: Female

DRUGS (4)
  1. LINZESS [Suspect]
     Route: 048
     Dates: start: 20140220
  2. CLONAZEPAM (CLONAZEPAM) (CLONAZEPAM) [Concomitant]
  3. MIRALAX (POLYETHYLENE GLYCOL) [Concomitant]
  4. FIBER (POLYCARBOPHIL CALCIUM) [Concomitant]

REACTIONS (3)
  - Diarrhoea [None]
  - Nausea [None]
  - Back pain [None]
